FAERS Safety Report 5126848-6 (Version None)
Quarter: 2006Q3

REPORT INFORMATION
  Report Type: 
  Country: None (occurrence: None)
  Receive Date: 20060825
  Receipt Date: 20060427
  Transmission Date: 20061208
  Serious: No
  Sender: FDA-Public Use
  Company Number: 2006US002978

PATIENT
  Sex: Male

DRUGS (1)
  1. ALOXI [Suspect]
     Indication: PROPHYLAXIS OF NAUSEA AND VOMITING
     Dosage: SEE IMAGE
     Route: 040
     Dates: start: 20060401

REACTIONS (2)
  - DRUG EFFECT DECREASED [None]
  - NAUSEA [None]
